FAERS Safety Report 12082494 (Version 1)
Quarter: 2016Q1

REPORT INFORMATION
  Report Type: Report from Study
  Country: AU (occurrence: AU)
  Receive Date: 20160217
  Receipt Date: 20160217
  Transmission Date: 20160526
  Serious: Yes (Other)
  Sender: FDA-Public Use
  Company Number: AU-ROCHE-1712039

PATIENT
  Age: 38 Year
  Sex: Male

DRUGS (1)
  1. ACTEMRA [Suspect]
     Active Substance: TOCILIZUMAB
     Indication: RHEUMATOID ARTHRITIS
     Route: 042
     Dates: start: 20151027

REACTIONS (4)
  - Blood cholesterol increased [Unknown]
  - Blood uric acid increased [Unknown]
  - Renal impairment [Unknown]
  - Fall [Unknown]

NARRATIVE: CASE EVENT DATE: 20160208
